FAERS Safety Report 21637597 (Version 1)
Quarter: 2022Q4

REPORT INFORMATION
  Report Type: Spontaneous
  Country: JP (occurrence: JP)
  Receive Date: 20221124
  Receipt Date: 20221124
  Transmission Date: 20230112
  Serious: Yes (Hospitalization)
  Sender: FDA-Public Use
  Company Number: JP-BAUSCH-BL-2022-025720

PATIENT
  Age: 90 Year
  Sex: Male

DRUGS (1)
  1. EFINACONAZOLE [Suspect]
     Active Substance: EFINACONAZOLE
     Indication: Dermatophytosis of nail
     Route: 061

REACTIONS (1)
  - Pneumonia aspiration [Unknown]
